FAERS Safety Report 7162157-1 (Version None)
Quarter: 2010Q4

REPORT INFORMATION
  Report Type: 
  Country: None (occurrence: None)
  Receive Date: 20101215
  Receipt Date: 20090908
  Transmission Date: 20110411
  Serious: Yes (Other)
  Sender: FDA-Public Use
  Company Number: US-PFIZER INC-2009247997

PATIENT
  Sex: Female
  Weight: 49.887 kg

DRUGS (2)
  1. LYRICA [Suspect]
     Indication: BACK PAIN
     Dosage: 150 MG, 1X/DAY
     Dates: start: 20090727
  2. FLOMAX [Concomitant]
     Dosage: UNK

REACTIONS (4)
  - ACTIVITIES OF DAILY LIVING IMPAIRED [None]
  - ADVERSE DRUG REACTION [None]
  - DIZZINESS [None]
  - SEDATION [None]
